FAERS Safety Report 6095054-3 (Version None)
Quarter: 2009Q1

REPORT INFORMATION
  Report Type: 
  Country: None (occurrence: None)
  Receive Date: 20090227
  Receipt Date: 20080225
  Transmission Date: 20090719
  Serious: No
  Sender: FDA-Public Use
  Company Number: A0701981A

PATIENT
  Age: 36 Year
  Sex: Male

DRUGS (4)
  1. LAMICTAL [Suspect]
     Indication: DRUG USE FOR UNKNOWN INDICATION
     Dosage: 200MG TWICE PER DAY
     Route: 048
     Dates: start: 20070501
  2. ZYPREXA [Concomitant]
  3. LITHIUM [Concomitant]
  4. PROPRANOLOL [Concomitant]

REACTIONS (5)
  - DIZZINESS [None]
  - NAUSEA [None]
  - PRODUCT QUALITY ISSUE [None]
  - THINKING ABNORMAL [None]
  - VISION BLURRED [None]
